FAERS Safety Report 13001907 (Version 3)
Quarter: 2017Q1

REPORT INFORMATION
  Report Type: Report from Study
  Country: US (occurrence: US)
  Receive Date: 20161206
  Receipt Date: 20170112
  Transmission Date: 20170428
  Serious: Yes (Other)
  Sender: FDA-Public Use
  Company Number: US-009507513-1612USA000329

PATIENT
  Age: 52 Year
  Sex: Male

DRUGS (4)
  1. PEMBROLIZUMAB. [Suspect]
     Active Substance: PEMBROLIZUMAB
     Dosage: UNK,FIFTH INFUSION
     Dates: start: 20161215
  2. LEVOTHYROXINE SODIUM. [Concomitant]
     Active Substance: LEVOTHYROXINE SODIUM
     Route: 048
  3. PEMBROLIZUMAB. [Suspect]
     Active Substance: PEMBROLIZUMAB
     Indication: NON-SMALL CELL LUNG CANCER
     Dosage: ONE INFUSION, DOSE UNSPECIFIED, Q3W
     Route: 042
     Dates: start: 20160921
  4. PEMBROLIZUMAB. [Suspect]
     Active Substance: PEMBROLIZUMAB
     Dosage: UNK, FOURTH INFUSION
     Dates: start: 20161123

REACTIONS (10)
  - Pain [Unknown]
  - Headache [Unknown]
  - Gait disturbance [Unknown]
  - Feeling cold [Unknown]
  - Dyspnoea [Recovering/Resolving]
  - Cough [Recovering/Resolving]
  - Malignant neoplasm progression [Not Recovered/Not Resolved]
  - Infusion related reaction [Unknown]
  - Back pain [Unknown]
  - Fatigue [Unknown]

NARRATIVE: CASE EVENT DATE: 2016
